FAERS Safety Report 16414384 (Version 1)
Quarter: 2019Q2

REPORT INFORMATION
  Report Type: Spontaneous
  Country: IT (occurrence: IT)
  Receive Date: 20190611
  Receipt Date: 20190611
  Transmission Date: 20190711
  Serious: Yes (Hospitalization)
  Sender: FDA-Public Use
  Company Number: IT-MYLANLABS-2019M1055154

PATIENT
  Age: 38 Year
  Sex: Male

DRUGS (1)
  1. LEPONEX [Suspect]
     Active Substance: CLOZAPINE
     Indication: PRODUCT USED FOR UNKNOWN INDICATION
     Dosage: 900 MILLIGRAM
     Route: 048
     Dates: start: 20190519, end: 20190519

REACTIONS (3)
  - Somnolence [Recovering/Resolving]
  - Drug abuse [Recovering/Resolving]
  - Slow speech [Recovering/Resolving]

NARRATIVE: CASE EVENT DATE: 20190519
